FAERS Safety Report 8160298-3 (Version None)
Quarter: 2012Q1

REPORT INFORMATION
  Report Type: 
  Country: None (occurrence: None)
  Receive Date: 20120223
  Receipt Date: 20120223
  Transmission Date: 20120608
  Serious: No
  Sender: FDA-Public Use
  Company Number: None

PATIENT
  Sex: Female

DRUGS (1)
  1. TIMOLOL MALEATE [Suspect]
     Indication: GLAUCOMA
     Dosage: 1 DROP
     Route: 031
     Dates: start: 20111220, end: 20120217

REACTIONS (2)
  - PRODUCT SUBSTITUTION ISSUE [None]
  - INTRAOCULAR PRESSURE INCREASED [None]
